FAERS Safety Report 13656878 (Version 1)
Quarter: 2017Q2

REPORT INFORMATION
  Report Type: Spontaneous
  Country: US (occurrence: US)
  Receive Date: 20170615
  Receipt Date: 20170615
  Transmission Date: 20170830
  Serious: Yes (Hospitalization)
  Sender: FDA-Public Use
  Company Number: US-ACTELION-A-NJ2017-151520

PATIENT
  Age: 67 Year
  Sex: Female

DRUGS (10)
  1. OPSUMIT [Suspect]
     Active Substance: MACITENTAN
     Indication: PULMONARY ARTERIAL HYPERTENSION
     Dosage: 10 MG, QD
     Route: 048
     Dates: start: 20170215, end: 201705
  2. TRAMADOL. [Concomitant]
     Active Substance: TRAMADOL
  3. ALLOPURINOL. [Concomitant]
     Active Substance: ALLOPURINOL
  4. KLOR-CON [Concomitant]
     Active Substance: POTASSIUM CHLORIDE
  5. LEVALBUTEROL. [Concomitant]
     Active Substance: LEVALBUTEROL
  6. SILDENAFIL. [Concomitant]
     Active Substance: SILDENAFIL
  7. LASIX [Concomitant]
     Active Substance: FUROSEMIDE
  8. PULMICORT TURBUHALER [Concomitant]
     Active Substance: BUDESONIDE
  9. VALSARTAN. [Concomitant]
     Active Substance: VALSARTAN
  10. RANITIDINE. [Concomitant]
     Active Substance: RANITIDINE

REACTIONS (2)
  - Nasal congestion [Unknown]
  - Pleural effusion [Recovered/Resolved]

NARRATIVE: CASE EVENT DATE: 20170424
